FAERS Safety Report 7162461 (Version 2)
Quarter: 2013Q3

REPORT INFORMATION
  Report Type: Spontaneous
  Country: None (occurrence: None)
  Receive Date: 20091019
  Receipt Date: 20130709
  Transmission Date: 20140515
  Serious: Yes (Other)
  Sender: FDA-Public Use
  Company Number: AUR-APL-2009-00819

PATIENT
  Age: 53 Year
  Sex: Male

DRUGS (11)
  1. ZIDOVUDINE [Suspect]
     Indication: HIV INFECTION
  2. LAMIVUDINE [Suspect]
     Indication: HIV INFECTION
  3. NEVIRAPINE (NEVIRAPINE) [Suspect]
     Indication: HIV INFECTION
  4. DIDANOSINE [Suspect]
     Indication: HIV INFECTION
  5. EFAVIRENZ [Suspect]
     Indication: HIV INFECTION
  6. EMTRICITABINE [Suspect]
     Indication: HIV INFECTION
  7. NELFINAVIR [Suspect]
     Indication: HIV INFECTION
  8. RITONAVIR [Suspect]
     Indication: HIV INFECTION
  9. SAQUINAVIR [Suspect]
     Indication: HIV INFECTION
  10. ATAZANAVIR [Suspect]
     Indication: HIV INFECTION
  11. TENOFOVIR [Suspect]
     Indication: HIV INFECTION

REACTIONS (3)
  - Gait disturbance [None]
  - Rapid eye movements sleep abnormal [None]
  - Parkinsonism [None]
